FAERS Safety Report 23906802 (Version 1)
Quarter: 2024Q2

REPORT INFORMATION
  Report Type: Spontaneous
  Country: US (occurrence: US)
  Receive Date: 20240528
  Receipt Date: 20240528
  Transmission Date: 20240715
  Serious: No
  Sender: FDA-Public Use
  Company Number: US-ABBVIE-5770359

PATIENT
  Sex: Male

DRUGS (1)
  1. RISANKIZUMAB [Suspect]
     Active Substance: RISANKIZUMAB
     Indication: Eczema
     Route: 058

REACTIONS (1)
  - Off label use [Unknown]
